FAERS Safety Report 8028670-X (Version None)
Quarter: 2012Q1

REPORT INFORMATION
  Report Type: 
  Country: None (occurrence: None)
  Receive Date: 20120106
  Receipt Date: 20111228
  Transmission Date: 20120608
  Serious: Yes (Hospitalization)
  Sender: FDA-Public Use
  Company Number: ZA-ABBOTT-11P-143-0885934-00

PATIENT
  Sex: Female

DRUGS (5)
  1. ALPRAZOLAM [Concomitant]
     Indication: PANIC ATTACK
     Route: 048
  2. SERLIFE [Concomitant]
     Indication: STRESS
  3. HUMIRA [Suspect]
     Route: 058
  4. HUMIRA [Suspect]
     Dosage: WEEK 2
     Route: 058
  5. HUMIRA [Suspect]
     Indication: CROHN'S DISEASE
     Dosage: LOADING DOSE
     Route: 058
     Dates: start: 20111101

REACTIONS (3)
  - EMOTIONAL DISORDER [None]
  - CROHN'S DISEASE [None]
  - CRYING [None]
